FAERS Safety Report 19644305 (Version 2)
Quarter: 2021Q3

REPORT INFORMATION
  Report Type: Spontaneous
  Country: BR (occurrence: BR)
  Receive Date: 20210801
  Receipt Date: 20210910
  Transmission Date: 20211014
  Serious: Yes (Other)
  Sender: FDA-Public Use
  Company Number: BR-AMGEN-BRASP2021115907

PATIENT
  Age: 75 Year
  Sex: Female

DRUGS (1)
  1. ENBREL [Suspect]
     Active Substance: ETANERCEPT
     Indication: PRODUCT USED FOR UNKNOWN INDICATION
     Dosage: UNK
     Route: 065

REACTIONS (10)
  - Arthralgia [Unknown]
  - Disease recurrence [Unknown]
  - Haematochezia [Unknown]
  - Injection site hypersensitivity [Unknown]
  - Colitis [Unknown]
  - Functional gastrointestinal disorder [Unknown]
  - Spinal pain [Unknown]
  - Mucous stools [Unknown]
  - Therapeutic product effect decreased [Unknown]
  - Joint swelling [Unknown]
